FAERS Safety Report 21029479 (Version 4)
Quarter: 2023Q4

REPORT INFORMATION
  Report Type: Report from Study
  Country: FR (occurrence: FR)
  Receive Date: 20220630
  Receipt Date: 20231220
  Transmission Date: 20240109
  Serious: Yes (Hospitalization, Other)
  Sender: FDA-Public Use
  Company Number: FR-GILEAD-2022-0569562

PATIENT
  Age: 59 Year
  Sex: Female
  Weight: 68 kg

DRUGS (6)
  1. SACITUZUMAB GOVITECAN-HZIY [Suspect]
     Active Substance: SACITUZUMAB GOVITECAN-HZIY
     Indication: Breast cancer metastatic
     Dosage: 10 MG/KG, C4D1 AND C4D8
     Route: 065
     Dates: start: 20220207, end: 20220214
  2. SACITUZUMAB GOVITECAN-HZIY [Suspect]
     Active Substance: SACITUZUMAB GOVITECAN-HZIY
     Dosage: 10 MG/KG, C5D1 AND C5D8
     Route: 065
     Dates: start: 20220228, end: 20220307
  3. SACITUZUMAB GOVITECAN-HZIY [Suspect]
     Active Substance: SACITUZUMAB GOVITECAN-HZIY
     Dosage: 550 MG/KG, C5D1 AND C5D8
     Route: 065
     Dates: start: 20220516, end: 20220523
  4. SACITUZUMAB GOVITECAN-HZIY [Suspect]
     Active Substance: SACITUZUMAB GOVITECAN-HZIY
     Dosage: 510 MG/KG, C6D1 AND C6D8
     Route: 065
     Dates: start: 20220606, end: 20220613
  5. SACITUZUMAB GOVITECAN-HZIY [Suspect]
     Active Substance: SACITUZUMAB GOVITECAN-HZIY
     Dosage: 510 MG, C5D1
     Route: 065
     Dates: start: 20220627
  6. SACITUZUMAB GOVITECAN-HZIY [Suspect]
     Active Substance: SACITUZUMAB GOVITECAN-HZIY
     Dosage: C10D8
     Route: 065
     Dates: start: 20230725, end: 20230725

REACTIONS (4)
  - Humerus fracture [Unknown]
  - Femur fracture [Unknown]
  - Fall [Recovered/Resolved]
  - Weight decreased [Unknown]

NARRATIVE: CASE EVENT DATE: 20220314
